FAERS Safety Report 13649804 (Version 1)
Quarter: 2017Q2

REPORT INFORMATION
  Report Type: Spontaneous
  Country: US (occurrence: US)
  Receive Date: 20170613
  Receipt Date: 20170613
  Transmission Date: 20170830
  Serious: Yes (Other)
  Sender: FDA-Public Use
  Company Number: None

PATIENT
  Age: 54 Year
  Sex: Male
  Weight: 90 kg

DRUGS (9)
  1. NORVASC [Concomitant]
     Active Substance: AMLODIPINE BESYLATE
  2. TESTOSTERONE CYPINATE [Suspect]
     Active Substance: TESTOSTERONE CYPIONATE
     Indication: HYPOPITUITARISM
     Dosage: ?          QUANTITY:1 ML;OTHER FREQUENCY:WEEKLY;?
     Route: 030
     Dates: start: 20170201, end: 20170501
  3. CABERGOLINE. [Concomitant]
     Active Substance: CABERGOLINE
  4. FISH OIL [Concomitant]
     Active Substance: FISH OIL
  5. ATORVASTATIN CALCIUM. [Concomitant]
     Active Substance: ATORVASTATIN CALCIUM
  6. INVOKAMET [Concomitant]
     Active Substance: CANAGLIFLOZIN\METFORMIN HYDROCHLORIDE
  7. CARVEDILOL. [Suspect]
     Active Substance: CARVEDILOL
  8. VITAMIN D [Concomitant]
     Active Substance: CHOLECALCIFEROL
  9. CALCIUM [Concomitant]
     Active Substance: CALCIUM

REACTIONS (3)
  - Product deposit [None]
  - Product quality issue [None]
  - Drug ineffective [None]

NARRATIVE: CASE EVENT DATE: 20170311
